FAERS Safety Report 4683528-9 (Version None)
Quarter: 2005Q2

REPORT INFORMATION
  Report Type: 
  Country: None (occurrence: None)
  Receive Date: 20050607
  Receipt Date: 20050526
  Transmission Date: 20051028
  Serious: Yes (Death)
  Sender: FDA-Public Use
  Company Number: 200511533JP

PATIENT
  Age: 69 Year
  Sex: Male
  Weight: 75 kg

DRUGS (8)
  1. TAXOTERE [Suspect]
     Indication: LUNG ADENOCARCINOMA
     Route: 041
     Dates: start: 20050325, end: 20050325
  2. RADIATION THERAPY [Suspect]
     Indication: LUNG ADENOCARCINOMA
  3. DECADRON [Concomitant]
  4. GASTER [Concomitant]
  5. AMLODIN [Concomitant]
  6. KYTRIL [Concomitant]
  7. MAGLAX [Concomitant]
  8. LOXONIN [Concomitant]

REACTIONS (2)
  - INTERSTITIAL LUNG DISEASE [None]
  - RADIATION PNEUMONITIS [None]
